FAERS Safety Report 24816469 (Version 1)
Quarter: 2025Q1

REPORT INFORMATION
  Report Type: Spontaneous
  Country: PL (occurrence: PL)
  Receive Date: 20250107
  Receipt Date: 20250107
  Transmission Date: 20250408
  Serious: Yes (Other)
  Sender: SANOFI AVENTIS
  Company Number: None

PATIENT
  Age: 75 Year
  Sex: Female
  Weight: 56 kg

DRUGS (4)
  1. ZALTRAP [Suspect]
     Active Substance: ZIV-AFLIBERCEPT
     Indication: Colon cancer
     Route: 042
     Dates: start: 20200210, end: 20201201
  2. IRINOTECAN [Suspect]
     Active Substance: IRINOTECAN
     Route: 042
     Dates: start: 20200210
  3. FLUOROURACIL [Suspect]
     Active Substance: FLUOROURACIL
     Route: 042
     Dates: start: 20200210
  4. LEVOLEUCOVORIN [Suspect]
     Active Substance: LEVOLEUCOVORIN
     Route: 042
     Dates: start: 20200210

REACTIONS (3)
  - Polyneuropathy [Recovering/Resolving]
  - Diarrhoea [Recovering/Resolving]
  - Asthenia [Recovering/Resolving]

NARRATIVE: CASE EVENT DATE: 20201017
